FAERS Safety Report 9403306 (Version 1)
Quarter: 2013Q3

REPORT INFORMATION
  Report Type: Spontaneous
  Country: DE (occurrence: DE)
  Receive Date: 20130716
  Receipt Date: 20130716
  Transmission Date: 20140515
  Serious: Yes (Hospitalization)
  Sender: FDA-Public Use
  Company Number: DE-B.I. PHARMACEUTICALS,INC./RIDGEFIELD-2013-DE-01808DE

PATIENT
  Age: 81 Year
  Sex: Female

DRUGS (2)
  1. PRADAXA [Suspect]
     Indication: ATRIAL FIBRILLATION
     Dosage: 110 MG
  2. MARCUMAR [Concomitant]
     Indication: ATRIAL FIBRILLATION

REACTIONS (5)
  - Intestinal infarction [Unknown]
  - Acute abdomen [Unknown]
  - Intestinal ischaemia [Unknown]
  - Prothrombin time shortened [Not Recovered/Not Resolved]
  - Off label use [Unknown]
